FAERS Safety Report 24680281 (Version 2)
Quarter: 2024Q4

REPORT INFORMATION
  Report Type: Spontaneous
  Country: DE (occurrence: DE)
  Receive Date: 20241129
  Receipt Date: 20241210
  Transmission Date: 20250115
  Serious: Yes (Other)
  Sender: IPSEN BIOPHARMACEUTICALS, INC.
  Company Number: DE-IPSEN Group, Research and Development-2024-24320

PATIENT
  Age: 53 Year
  Sex: Female

DRUGS (2)
  1. DYSPORT [Suspect]
     Active Substance: ABOBOTULINUMTOXINA
     Indication: Muscle spasticity
     Dosage: M. LATISSIMUS DORSI BOTH SIDES. EACH 100 IE ?M. PECTORALIS MAJOR RIGHT 100 IE, LEFT 150 IE ?M. SUPRA
     Route: 065
     Dates: start: 20230519, end: 20230519
  2. DYSPORT [Suspect]
     Active Substance: ABOBOTULINUMTOXINA
     Dosage: M. LATISSIMUS DORSI BOTH SIDES. EACH 100 IE ?M. PECTORALIS MAJOR RIGHT 100 IE, LEFT 150 IE ?M. SUPRA
     Route: 065
     Dates: start: 20240821, end: 20240821

REACTIONS (2)
  - Breast cancer female [Unknown]
  - Off label use [Unknown]

NARRATIVE: CASE EVENT DATE: 20230519
